FAERS Safety Report 6023928-8 (Version None)
Quarter: 2008Q4

REPORT INFORMATION
  Report Type: 
  Country: None (occurrence: None)
  Receive Date: 20081230
  Receipt Date: 20081218
  Transmission Date: 20090506
  Serious: Yes (Hospitalization)
  Sender: FDA-Public Use
  Company Number: DK-GENENTECH-274571

PATIENT
  Sex: Male

DRUGS (8)
  1. BEVACIZUMAB [Suspect]
     Indication: BRAIN NEOPLASM
     Dosage: 890 MG, Q2W
     Route: 042
     Dates: start: 20080912
  2. IRINOTECAN HCL [Suspect]
     Indication: BRAIN NEOPLASM
     Dosage: 250 MG, Q2W
     Route: 042
     Dates: start: 20080912
  3. PREDNISOLONE [Concomitant]
     Indication: DRUG USE FOR UNKNOWN INDICATION
     Dosage: UNK
     Dates: start: 20080901
  4. SEREVENT [Concomitant]
     Indication: DRUG USE FOR UNKNOWN INDICATION
     Dosage: UNK
  5. FLUTICASONE PROPIONATE [Concomitant]
     Indication: DRUG USE FOR UNKNOWN INDICATION
     Dosage: UNK
  6. VENTOLIN [Concomitant]
     Indication: DRUG USE FOR UNKNOWN INDICATION
     Dosage: UNK
  7. LANSOPRAZOLE [Concomitant]
     Indication: DRUG USE FOR UNKNOWN INDICATION
     Dosage: UNK
  8. FLUCONAZOLE [Concomitant]
     Indication: DRUG USE FOR UNKNOWN INDICATION
     Dosage: UNK
     Dates: start: 20081024, end: 20081102

REACTIONS (1)
  - PYREXIA [None]
